FAERS Safety Report 7243225-2 (Version None)
Quarter: 2011Q1

REPORT INFORMATION
  Report Type: 
  Country: None (occurrence: None)
  Receive Date: 20110125
  Receipt Date: 20110114
  Transmission Date: 20110831
  Serious: Yes (Life-Threatening, Other)
  Sender: FDA-Public Use
  Company Number: JP-ROCHE-750850

PATIENT
  Sex: Male
  Weight: 52 kg

DRUGS (13)
  1. ELPLAT [Suspect]
     Dosage: STOP DATE: 2010.
     Route: 041
     Dates: start: 20100617
  2. AVASTIN [Suspect]
     Indication: LARGE INTESTINE CARCINOMA
     Route: 041
     Dates: start: 20101118, end: 20101210
  3. CLINORIL [Suspect]
     Route: 048
     Dates: start: 20101125, end: 20101213
  4. OXYCONTIN [Suspect]
     Route: 048
     Dates: start: 20101208, end: 20101213
  5. ELPLAT [Suspect]
     Route: 041
     Dates: start: 20100617, end: 20101028
  6. AMARYL [Concomitant]
     Route: 048
     Dates: start: 20100610, end: 20101213
  7. KENTAN [Concomitant]
     Route: 048
     Dates: start: 20101125, end: 20101207
  8. XELODA [Suspect]
     Indication: LARGE INTESTINE CARCINOMA
     Route: 048
     Dates: start: 20100617, end: 20101213
  9. OXINORM [Suspect]
     Dosage: DOSE FORM: POWDERED MEDICINE.
     Route: 048
     Dates: start: 20101208, end: 20101213
  10. NOVAMIN [Concomitant]
     Route: 048
     Dates: start: 20101208, end: 20101213
  11. ELPLAT [Concomitant]
     Dosage: STOP DATE: 2010.
     Route: 041
     Dates: start: 20100617
  12. ELPLAT [Concomitant]
     Route: 041
     Dates: start: 20100617, end: 20101028
  13. PYDOXAL [Concomitant]
     Route: 048
     Dates: start: 20100805, end: 20101213

REACTIONS (13)
  - DISSEMINATED INTRAVASCULAR COAGULATION [None]
  - PLATELET COUNT DECREASED [None]
  - CONSTIPATION [None]
  - RECTAL PERFORATION [None]
  - NEUROPATHY PERIPHERAL [None]
  - SEPSIS [None]
  - ALTERED STATE OF CONSCIOUSNESS [None]
  - GASTRITIS [None]
  - PROCTALGIA [None]
  - URTICARIA [None]
  - PYREXIA [None]
  - HYPOTENSION [None]
  - PALMAR-PLANTAR ERYTHRODYSAESTHESIA SYNDROME [None]
